FAERS Safety Report 24749023 (Version 1)
Quarter: 2024Q4

REPORT INFORMATION
  Report Type: Spontaneous
  Country: GB (occurrence: GB)
  Receive Date: 20241218
  Receipt Date: 20241218
  Transmission Date: 20250114
  Serious: Yes (Other)
  Sender: ELI LILLY AND COMPANY
  Company Number: None

PATIENT

DRUGS (1)
  1. MOUNJARO [Suspect]
     Active Substance: TIRZEPATIDE
     Indication: Product used for unknown indication
     Dosage: UNK UNK, UNKNOWN
     Route: 065

REACTIONS (11)
  - Vomiting projectile [Recovered/Resolved]
  - Hyperhidrosis [Recovered/Resolved]
  - Tremor [Recovered/Resolved]
  - Incoherent [Recovered/Resolved]
  - Diarrhoea [Recovered/Resolved]
  - Illness [Unknown]
  - Anal incontinence [Unknown]
  - Feeling abnormal [Unknown]
  - Malaise [Unknown]
  - Abdominal pain upper [Unknown]
  - Eructation [Unknown]

NARRATIVE: CASE EVENT DATE: 20241213
